FAERS Safety Report 11521459 (Version 1)
Quarter: 2015Q3

REPORT INFORMATION
  Report Type: Spontaneous
  Country: US (occurrence: None)
  Receive Date: 20150917
  Receipt Date: 20150917
  Transmission Date: 20151125
  Serious: No
  Sender: FDA-Public Use
  Company Number: None

PATIENT
  Age: 65 Year
  Sex: Male
  Weight: 60.9 kg

DRUGS (1)
  1. DASABUVIR/OMBITASVIR/PARITAPREVIR/RITONAVIR [Suspect]
     Active Substance: DASABUVIR\OMBITASVIR\PARITAPREVIR\RITONAVIR
     Indication: HEPATITIS C
     Dates: start: 20150515, end: 20150609

REACTIONS (7)
  - Feeding disorder [None]
  - Hepatitis C [None]
  - Drug intolerance [None]
  - Weight decreased [None]
  - Liver injury [None]
  - Decreased appetite [None]
  - Condition aggravated [None]

NARRATIVE: CASE EVENT DATE: 20150622
